FAERS Safety Report 5161290-3 (Version None)
Quarter: 2006Q4

REPORT INFORMATION
  Report Type: 
  Country: None (occurrence: None)
  Receive Date: 20061121
  Receipt Date: 20061107
  Transmission Date: 20070319
  Serious: Yes (Other)
  Sender: FDA-Public Use
  Company Number: 2006138191

PATIENT
  Age: 20 Year
  Sex: Female

DRUGS (2)
  1. LYRICA [Suspect]
     Indication: MYOCLONIC EPILEPSY
     Dosage: 150 MG (75 MG, 2 IN 1 D)
  2. TOPIRAMATE [Suspect]

REACTIONS (2)
  - CONDITION AGGRAVATED [None]
  - MYOCLONIC EPILEPSY [None]
